FAERS Safety Report 8084284 (Version 4)
Quarter: 2014Q3

REPORT INFORMATION
  Report Type: Spontaneous
  Country: US (occurrence: US)
  Receive Date: 20110810
  Receipt Date: 20140716
  Transmission Date: 20150326
  Serious: Yes (Hospitalization)
  Sender: FDA-Public Use
  Company Number: US-GLAXOSMITHKLINE-A0877037A

PATIENT
  Sex: Female
  Weight: 81.8 kg

DRUGS (16)
  1. LISINOPRIL. [Concomitant]
     Active Substance: LISINOPRIL
  2. METFORMIN [Concomitant]
     Active Substance: METFORMIN HYDROCHLORIDE
  3. PEPCID [Concomitant]
     Active Substance: FAMOTIDINE
  4. NEURONTIN [Concomitant]
     Active Substance: GABAPENTIN
  5. PLAVIX [Concomitant]
     Active Substance: CLOPIDOGREL BISULFATE
  6. LIPITOR [Concomitant]
     Active Substance: ATORVASTATIN CALCIUM
  7. ROSIGLITAZONE MALEATE. [Suspect]
     Active Substance: ROSIGLITAZONE MALEATE
     Indication: DIABETES MELLITUS
     Dosage: 8MG PER DAY
     Route: 048
     Dates: start: 200506, end: 200509
  8. INSULIN [Concomitant]
     Active Substance: INSULIN NOS
  9. ALPRAZOLAM. [Concomitant]
     Active Substance: ALPRAZOLAM
  10. COREG [Concomitant]
     Active Substance: CARVEDILOL
  11. ASPIRIN. [Concomitant]
     Active Substance: ASPIRIN
  12. AVANDIA [Suspect]
     Active Substance: ROSIGLITAZONE MALEATE
     Indication: DIABETES MELLITUS
     Dosage: 8MG PER DAY
     Route: 048
     Dates: start: 200011, end: 200705
  13. XANAX [Concomitant]
     Active Substance: ALPRAZOLAM
  14. LEVEMIR [Concomitant]
     Active Substance: INSULIN DETEMIR
  15. LASIX [Concomitant]
     Active Substance: FUROSEMIDE
  16. KCL [Concomitant]
     Active Substance: POTASSIUM CHLORIDE

REACTIONS (9)
  - Cardiac arrest [Unknown]
  - Cardiac failure congestive [Unknown]
  - Coronary artery disease [Unknown]
  - Fluid overload [Unknown]
  - Ischaemic cardiomyopathy [Unknown]
  - Myocardial infarction [Not Recovered/Not Resolved]
  - Fluid retention [Unknown]
  - Vascular graft [Unknown]
  - Supraventricular tachycardia [Unknown]
